FAERS Safety Report 8412781-0 (Version None)
Quarter: 2012Q2

REPORT INFORMATION
  Report Type: 
  Country: None (occurrence: None)
  Receive Date: 20120605
  Receipt Date: 20120524
  Transmission Date: 20120825
  Serious: Yes (Other)
  Sender: FDA-Public Use
  Company Number: US-AMGEN-USASP2012032753

PATIENT
  Age: 67 Year
  Sex: Female

DRUGS (1)
  1. ENBREL [Suspect]
     Indication: RHEUMATOID ARTHRITIS
     Dosage: 50 MG, QWK
     Dates: start: 20091109, end: 20090101

REACTIONS (6)
  - HERPES ZOSTER [None]
  - TOOTHACHE [None]
  - POST PROCEDURAL INFECTION [None]
  - GAIT DISTURBANCE [None]
  - FOOT DEFORMITY [None]
  - LOCALISED INFECTION [None]
